FAERS Safety Report 8457482-8 (Version None)
Quarter: 2012Q2

REPORT INFORMATION
  Report Type: 
  Country: None (occurrence: None)
  Receive Date: 20120622
  Receipt Date: 20120620
  Transmission Date: 20120825
  Serious: Yes (Hospitalization, Other)
  Sender: FDA-Public Use
  Company Number: SE-AMGEN-SWESP2012033107

PATIENT
  Age: 71 Year
  Sex: Female

DRUGS (4)
  1. DOXORUBICIN HCL [Concomitant]
  2. VINCRISTINE [Concomitant]
  3. CYCLOPHOSPHAMIDE [Concomitant]
  4. NEULASTA [Suspect]
     Indication: HODGKIN'S DISEASE
     Dosage: 6 MG, ONE TIME DOSE
     Dates: start: 20120507, end: 20120507

REACTIONS (1)
  - CEREBRAL INFARCTION [None]
